FAERS Safety Report 6267600-8 (Version None)
Quarter: 2009Q3

REPORT INFORMATION
  Report Type: 
  Country: None (occurrence: None)
  Receive Date: 20090714
  Receipt Date: 20090703
  Transmission Date: 20100115
  Serious: Yes (Other)
  Sender: FDA-Public Use
  Company Number: JP-ELI_LILLY_AND_COMPANY-JP200903002776

PATIENT
  Sex: Female

DRUGS (5)
  1. EVISTA [Suspect]
     Indication: OSTEOPOROSIS
     Dosage: 60 MG, DAILY (1/D)
     Route: 048
     Dates: start: 20070201, end: 20090309
  2. MOBIC [Concomitant]
     Indication: SPINAL OSTEOARTHRITIS
     Dosage: 10 MG, DAILY (1/D)
     Route: 048
     Dates: start: 20051027
  3. PARIET [Concomitant]
     Indication: GASTRITIS
     Dosage: 10 MG, DAILY (1/D)
     Route: 048
     Dates: start: 20051027
  4. ALFAROL [Concomitant]
     Indication: OSTEOPOROSIS
     Dosage: 1 UG, DAILY (1/D)
     Route: 048
     Dates: start: 20070201
  5. ZEPOLAS [Concomitant]
     Indication: SPINAL OSTEOARTHRITIS
     Route: 062

REACTIONS (2)
  - PALLOR [None]
  - PERIPHERAL ARTERIAL OCCLUSIVE DISEASE [None]
